FAERS Safety Report 11399419 (Version 1)
Quarter: 2015Q3

REPORT INFORMATION
  Report Type: Spontaneous
  Country: BR (occurrence: BR)
  Receive Date: 20150820
  Receipt Date: 20150820
  Transmission Date: 20151125
  Serious: Yes (Other)
  Sender: FDA-Public Use
  Company Number: BR-PFIZER INC-2015237350

PATIENT
  Sex: Female

DRUGS (1)
  1. XALATAN [Suspect]
     Active Substance: LATANOPROST
     Dosage: UNK
     Dates: start: 201507

REACTIONS (4)
  - Visual impairment [Not Recovered/Not Resolved]
  - Conjunctivitis [Unknown]
  - Ocular hyperaemia [Not Recovered/Not Resolved]
  - Photophobia [Unknown]

NARRATIVE: CASE EVENT DATE: 2015
